FAERS Safety Report 9107395 (Version 2)
Quarter: 2013Q2

REPORT INFORMATION
  Report Type: Spontaneous
  Country: SE (occurrence: SE)
  Receive Date: 20130221
  Receipt Date: 20130517
  Transmission Date: 20140414
  Serious: Yes (Other)
  Sender: FDA-Public Use
  Company Number: SE-ALEXION PHARMACEUTICALS INC.-A201300251

PATIENT
  Age: 47 Year
  Sex: Male

DRUGS (6)
  1. SOLIRIS 300MG [Suspect]
     Indication: HAEMOLYTIC URAEMIC SYNDROME
     Dosage: 1200 MG, Q2W
     Route: 042
     Dates: start: 201208
  2. SOLIRIS 300MG [Suspect]
     Indication: PROPHYLAXIS
  3. SOLUMEDROL [Suspect]
     Indication: PROPHYLAXIS AGAINST TRANSPLANT REJECTION
     Dosage: 500 MG, UNK
     Dates: start: 20121121, end: 20121124
  4. TACROLIMUS [Concomitant]
     Indication: IMMUNOSUPPRESSION
     Dosage: 2.5 MG, BID
     Route: 048
     Dates: start: 20120822
  5. CELLCEPT [Concomitant]
     Indication: IMMUNOSUPPRESSION
     Dosage: 1 G, BID
     Route: 048
     Dates: start: 20120822
  6. PREDNISONE [Concomitant]
     Indication: IMMUNOSUPPRESSION
     Dosage: 15 MG, QD
     Route: 048
     Dates: start: 20120822

REACTIONS (2)
  - BK virus infection [Not Recovered/Not Resolved]
  - Kidney transplant rejection [Unknown]
